FAERS Safety Report 5104100-2 (Version None)
Quarter: 2006Q3

REPORT INFORMATION
  Report Type: 
  Country: None (occurrence: None)
  Receive Date: 20060913
  Receipt Date: 20060905
  Transmission Date: 20061208
  Serious: Yes (Other)
  Sender: FDA-Public Use
  Company Number: NL-BOEHRINGER INGELHEIM PHARMACEUTICALS, INC.-2006-NL-00243NL

PATIENT
  Sex: Female
  Weight: 80 kg

DRUGS (1)
  1. MICARDIS HCT [Suspect]
     Indication: HYPERTENSION
     Dosage: STRENGTH: 80/12.5MG DAILY DOSE: 2D1/2
     Dates: start: 20060301

REACTIONS (2)
  - COGNITIVE DISORDER [None]
  - MUSCLE SPASMS [None]
